FAERS Safety Report 9287841 (Version 2)
Quarter: 2013Q3

REPORT INFORMATION
  Report Type: Spontaneous
  Country: US (occurrence: US)
  Receive Date: 20130514
  Receipt Date: 20130719
  Transmission Date: 20140515
  Serious: No
  Sender: FDA-Public Use
  Company Number: US-PFIZER INC-2013148195

PATIENT
  Sex: Female
  Weight: 59.86 kg

DRUGS (3)
  1. ADVIL CONGESTION RELIEF [Suspect]
     Indication: SINUS HEADACHE
     Dosage: UNK, AS NEEDED
  2. NEURONTIN [Concomitant]
     Indication: PAIN IN EXTREMITY
     Dosage: 400 MG, THREE TIMES A DAY
  3. FIORICET [Concomitant]
     Dosage: UNK

REACTIONS (2)
  - Malaise [Recovered/Resolved]
  - Abdominal pain upper [Recovered/Resolved]
